FAERS Safety Report 10084754 (Version 2)
Quarter: 2014Q2

REPORT INFORMATION
  Report Type: Report from Study
  Country: KR (occurrence: KR)
  Receive Date: 20140417
  Receipt Date: 20140429
  Transmission Date: 20141212
  Serious: Yes (Hospitalization)
  Sender: FDA-Public Use
  Company Number: KR-GLAXOSMITHKLINE-B0986774A

PATIENT
  Age: 57 Year
  Sex: Female
  Weight: 58.1 kg

DRUGS (5)
  1. TYKERB [Suspect]
     Indication: BREAST CANCER
     Dosage: 1250MG PER DAY
     Route: 048
     Dates: start: 20140129
  2. XELODA [Suspect]
     Indication: BREAST CANCER
     Dosage: 1600MG TWICE PER DAY
     Route: 048
     Dates: start: 20140129
  3. HYDROMORPHONE [Concomitant]
     Indication: PAIN IN EXTREMITY
     Dosage: 2MG PER DAY
     Route: 048
     Dates: start: 20140128, end: 20140311
  4. FENTANYL [Concomitant]
     Indication: PAIN IN EXTREMITY
     Dosage: 12MCG PER DAY
     Route: 050
     Dates: start: 20140304, end: 20140311
  5. FUCIDIN CREAM [Concomitant]
     Indication: SKIN LESION
     Route: 061
     Dates: start: 20140304, end: 20140311

REACTIONS (2)
  - Pleural effusion [Recovered/Resolved]
  - Pneumonia [Recovered/Resolved]
